FAERS Safety Report 14109826 (Version 1)
Quarter: 2017Q4

REPORT INFORMATION
  Report Type: Spontaneous
  Country: US (occurrence: US)
  Receive Date: 20171020
  Receipt Date: 20171020
  Transmission Date: 20180321
  Serious: No
  Sender: FDA-Public Use
  Company Number: US-TEVA-749589ACC

PATIENT
  Age: 70 Year
  Sex: Female

DRUGS (6)
  1. PRAVASTATIN. [Concomitant]
     Active Substance: PRAVASTATIN
  2. XANAX [Concomitant]
     Active Substance: ALPRAZOLAM
  3. LEVOCETIRIZINE [Concomitant]
     Active Substance: LEVOCETIRIZINE
  4. ELIQUIS [Concomitant]
     Active Substance: APIXABAN
  5. OXYCODONE - ACETAMINOPHEN [Concomitant]
     Active Substance: ACETAMINOPHEN\OXYCODONE HYDROCHLORIDE
     Dosage: 5-325
  6. ESTRACE [Suspect]
     Active Substance: ESTRADIOL
     Dates: end: 201509

REACTIONS (1)
  - Breast tenderness [Recovering/Resolving]

NARRATIVE: CASE EVENT DATE: 20150310
